FAERS Safety Report 10013601 (Version 3)
Quarter: 2014Q2

REPORT INFORMATION
  Report Type: Spontaneous
  Country: JP (occurrence: JP)
  Receive Date: 20140315
  Receipt Date: 20140401
  Transmission Date: 20141212
  Serious: Yes (Other)
  Sender: FDA-Public Use
  Company Number: JP-009507513-1402JPN003326

PATIENT
  Age: 71 Year
  Sex: Female

DRUGS (2)
  1. PNEUMOVAX NP [Suspect]
     Indication: PROPHYLAXIS
     Route: 058
  2. INTERFERON (UNSPECIFIED) [Suspect]
     Dosage: DAILY DOSAGE UNKNOWN
     Route: 051

REACTIONS (2)
  - Peripheral swelling [Recovered/Resolved]
  - Hyperthermia [Recovered/Resolved]
